FAERS Safety Report 9005281 (Version 4)
Quarter: 2013Q1

REPORT INFORMATION
  Report Type: Spontaneous
  Country: US (occurrence: US)
  Receive Date: 20130108
  Receipt Date: 20130125
  Transmission Date: 20140127
  Serious: No
  Sender: FDA-Public Use
  Company Number: US-009507513-1301USA001415

PATIENT
  Sex: Female

DRUGS (1)
  1. NUVARING [Suspect]
     Dosage: UNK
     Route: 067
     Dates: start: 201212, end: 201212

REACTIONS (4)
  - Skin discolouration [Recovering/Resolving]
  - Vomiting [Recovering/Resolving]
  - Dysmenorrhoea [Recovering/Resolving]
  - Genital disorder female [Unknown]
